FAERS Safety Report 6366081-3 (Version None)
Quarter: 2009Q3

REPORT INFORMATION
  Report Type: 
  Country: None (occurrence: None)
  Receive Date: 20090920
  Receipt Date: 20080806
  Transmission Date: 20100115
  Serious: No
  Sender: FDA-Public Use
  Company Number: US-BAUSCH-2008BL003437

PATIENT
  Age: 71 Year
  Sex: Female

DRUGS (2)
  1. NEOMYCIN AND POLYMXIN B SULFATES AND HYDROCORTISONE [Suspect]
     Indication: EAR INFECTION
     Route: 001
     Dates: start: 20080416, end: 20080503
  2. AMOXICILLIN [Concomitant]
     Indication: EAR INFECTION
     Route: 048
     Dates: start: 20080417, end: 20080426

REACTIONS (3)
  - DRUG INEFFECTIVE [None]
  - HYPOACUSIS [None]
  - TINNITUS [None]
